FAERS Safety Report 16695068 (Version 2)
Quarter: 2019Q4

REPORT INFORMATION
  Report Type: Report from Study
  Country: None (occurrence: CA)
  Receive Date: 20190812
  Receipt Date: 20191212
  Transmission Date: 20200122
  Serious: Yes (Hospitalization, Other)
  Sender: FDA-Public Use
  Company Number: CA-ABBVIE-19K-028-2885438-00

PATIENT
  Sex: Female

DRUGS (1)
  1. HUMIRA [Suspect]
     Active Substance: ADALIMUMAB
     Indication: ANKYLOSING SPONDYLITIS
     Route: 058
     Dates: start: 20180323

REACTIONS (8)
  - Haemorrhoids [Unknown]
  - Gastrointestinal stromal tumour [Not Recovered/Not Resolved]
  - Neoplasm malignant [Unknown]
  - Musculoskeletal discomfort [Unknown]
  - Musculoskeletal discomfort [Not Recovered/Not Resolved]
  - Rectal haemorrhage [Unknown]
  - Musculoskeletal stiffness [Not Recovered/Not Resolved]
  - Pain [Not Recovered/Not Resolved]

NARRATIVE: CASE EVENT DATE: 2019
